FAERS Safety Report 10455376 (Version 2)
Quarter: 2014Q3

REPORT INFORMATION
  Report Type: Spontaneous
  Country: GR (occurrence: GR)
  Receive Date: 20140916
  Receipt Date: 20140916
  Transmission Date: 20150326
  Serious: Yes (Life-Threatening, Hospitalization)
  Sender: FDA-Public Use
  Company Number: GR-RANBAXY-2013R1-69803

PATIENT
  Age: 37 Year
  Sex: Female

DRUGS (4)
  1. CIPROFLOXACIN. [Suspect]
     Active Substance: CIPROFLOXACIN
     Indication: PYELONEPHRITIS ACUTE
     Dosage: UNK
     Route: 065
  2. NORFLOXACIN [Suspect]
     Active Substance: NORFLOXACIN
     Indication: CYSTITIS ESCHERICHIA
     Dosage: UNK
     Route: 065
  3. NETROMYCIN [Concomitant]
     Active Substance: NETILMICIN SULFATE
     Indication: PYELONEPHRITIS ACUTE
     Dosage: UNK
     Route: 065
  4. CEFUROXIME. [Concomitant]
     Active Substance: CEFUROXIME
     Indication: CYSTITIS ESCHERICHIA
     Dosage: UNK
     Route: 065

REACTIONS (5)
  - Septic shock [Recovered/Resolved]
  - Multi-organ failure [Recovered/Resolved]
  - Escherichia pyelonephritis [Recovered/Resolved]
  - Renal abscess [Recovered/Resolved]
  - Disease progression [Recovered/Resolved]
